FAERS Safety Report 17107037 (Version 4)
Quarter: 2020Q2

REPORT INFORMATION
  Report Type: Spontaneous
  Country: US (occurrence: US)
  Receive Date: 20191203
  Receipt Date: 20200519
  Transmission Date: 20200713
  Serious: No
  Sender: FDA-Public Use
  Company Number: US-PFIZER INC-2019520549

PATIENT
  Age: 81 Year
  Sex: Male
  Weight: 68.03 kg

DRUGS (1)
  1. ADVIL LIQUI-GELS [Suspect]
     Active Substance: IBUPROFEN
     Indication: ARTHRITIS
     Dosage: 200 MG, UNK (1 TO 2 A DAY)

REACTIONS (1)
  - Drug ineffective [Unknown]
